FAERS Safety Report 17987010 (Version 2)
Quarter: 2020Q3

REPORT INFORMATION
  Report Type: Report from Study
  Country: None (occurrence: US)
  Receive Date: 20200707
  Receipt Date: 20200910
  Transmission Date: 20201103
  Serious: Yes (Death, Hospitalization, Other)
  Sender: FDA-Public Use
  Company Number: US-ABBVIE-20K-163-3472132-00

PATIENT
  Age: 71 Year
  Sex: Male

DRUGS (4)
  1. CLARITIN [Concomitant]
     Active Substance: LORATADINE
     Indication: HYPERSENSITIVITY
  2. CREON [Suspect]
     Active Substance: PANCRELIPASE AMYLASE\PANCRELIPASE LIPASE\PANCRELIPASE PROTEASE
     Indication: DIARRHOEA
     Dosage: 13 TABS PER DAY.3 WITH EACH MEAL AND 2 WITH EACH SNACK DAILY?FREQUENCY TIME 5 DAYS
     Route: 048
  3. METFORMIN [Concomitant]
     Active Substance: METFORMIN HYDROCHLORIDE
     Indication: DIABETES MELLITUS
  4. CREON [Suspect]
     Active Substance: PANCRELIPASE AMYLASE\PANCRELIPASE LIPASE\PANCRELIPASE PROTEASE
     Indication: PANCREATIC FAILURE
     Dosage: 9?11 CAPSULES A DAY. 3 CAPSULES WITH MEALS AND 2 CAPSULES WITH A SNACK.
     Route: 048
     Dates: start: 20180831

REACTIONS (4)
  - Pruritus allergic [Unknown]
  - Drug hypersensitivity [Unknown]
  - Dementia [Unknown]
  - Death [Fatal]

NARRATIVE: CASE EVENT DATE: 2018
